FAERS Safety Report 6456620-6 (Version None)
Quarter: 2009Q4

REPORT INFORMATION
  Report Type: 
  Country: None (occurrence: None)
  Receive Date: 20091125
  Receipt Date: 20091113
  Transmission Date: 20100525
  Serious: Yes (Other)
  Sender: FDA-Public Use
  Company Number: FR-CELGENEUS-056-20785-09092008

PATIENT
  Sex: Female
  Weight: 88 kg

DRUGS (7)
  1. THALIDOMIDE [Suspect]
     Indication: CUTANEOUS LUPUS ERYTHEMATOSUS
     Route: 048
     Dates: start: 20090828, end: 20090901
  2. PLAQUENIL [Concomitant]
     Indication: CUTANEOUS LUPUS ERYTHEMATOSUS
     Route: 065
     Dates: start: 20070101
  3. PLAQUENIL [Concomitant]
     Route: 065
     Dates: start: 20090826
  4. CERAZETTE [Concomitant]
     Indication: CONTRACEPTION
     Route: 048
  5. CONTRACEPTIVE PILL [Concomitant]
     Indication: CONTRACEPTION
     Route: 065
  6. CHLOROQUINE PHOSPHATE [Concomitant]
     Indication: DRUG USE FOR UNKNOWN INDICATION
     Route: 065
  7. DERMOCORTICOSTEROIDS [Concomitant]
     Indication: DRUG USE FOR UNKNOWN INDICATION
     Route: 065

REACTIONS (4)
  - BREAST DISCOMFORT [None]
  - DERMATITIS BULLOUS [None]
  - HEADACHE [None]
  - VERTIGO [None]
